FAERS Safety Report 9258392 (Version 2)
Quarter: 2013Q2

REPORT INFORMATION
  Report Type: Spontaneous
  Country: IT (occurrence: IT)
  Receive Date: 20130426
  Receipt Date: 20130510
  Transmission Date: 20140414
  Serious: Yes (Other)
  Sender: FDA-Public Use
  Company Number: PHHY2013IT039375

PATIENT
  Age: 78 Year
  Sex: Female

DRUGS (8)
  1. PACLITAXEL SANDOZ [Suspect]
     Indication: MALIGNANT NEOPLASM OF RENAL PELVIS
     Dosage: 121.6 MG CYCLIC
     Route: 042
     Dates: start: 20130409, end: 20130409
  2. TRIMETON [Concomitant]
     Dates: start: 20130409, end: 20130409
  3. SOLDESAM [Concomitant]
     Dosage: 8 MG
     Route: 042
     Dates: start: 20130409, end: 20130409
  4. IPERTEN [Concomitant]
     Dosage: 20 MG
     Route: 048
  5. ONDANSETRON HIKMA [Concomitant]
     Route: 042
     Dates: start: 20130409, end: 20130409
  6. DILATREND [Concomitant]
     Dosage: 25 MG
  7. RANIDIL [Concomitant]
     Dosage: 100 MG
     Route: 042
     Dates: start: 20130409, end: 20130409
  8. VALPRESSION [Concomitant]
     Dosage: 80 MG
     Route: 048

REACTIONS (5)
  - Musculoskeletal stiffness [Recovered/Resolved]
  - Neck pain [Recovered/Resolved]
  - Back pain [Recovered/Resolved]
  - Dizziness [Recovered/Resolved]
  - Vertigo [Recovered/Resolved]
